FAERS Safety Report 6034293-4 (Version None)
Quarter: 2009Q1

REPORT INFORMATION
  Report Type: 
  Country: None (occurrence: None)
  Receive Date: 20090112
  Receipt Date: 20090108
  Transmission Date: 20090719
  Serious: Yes (Death, Hospitalization, Other)
  Sender: FDA-Public Use
  Company Number: GB-ELI_LILLY_AND_COMPANY-GB200805002510

PATIENT
  Sex: Male
  Weight: 86 kg

DRUGS (7)
  1. GEMZAR [Suspect]
     Indication: BLADDER CANCER
     Dosage: 1960 MG, ON DAY ONE AND EIGHT OF 21-DAY CYCLE
     Route: 042
     Dates: start: 20071023, end: 20071218
  2. CARBOPLATIN [Concomitant]
     Indication: BLADDER CANCER
     Dosage: UNK, UNKNOWN
     Route: 065
  3. LEVOTHYROXINE SODIUM [Concomitant]
     Indication: THYROID THERAPY
     Dosage: UNK, UNKNOWN
     Route: 065
  4. ASPIRIN [Concomitant]
     Indication: ATRIAL FIBRILLATION
     Dosage: UNK, UNKNOWN
     Route: 065
  5. QUININE [Concomitant]
     Indication: MUSCLE SPASMS
     Dosage: UNK, UNKNOWN
     Route: 065
  6. DIGOXIN [Concomitant]
     Indication: ATRIAL FIBRILLATION
     Dosage: UNK, UNKNOWN
     Route: 065
  7. ACETAMINOPHEN W/ CODEINE [Concomitant]
     Indication: ANALGESIA
     Dosage: UNK, UNKNOWN
     Route: 065

REACTIONS (5)
  - CATHETER RELATED COMPLICATION [None]
  - CRYOGLOBULINAEMIA [None]
  - NEOPLASM MALIGNANT [None]
  - PAIN IN EXTREMITY [None]
  - SKIN DISCOLOURATION [None]
